FAERS Safety Report 7369935-4 (Version None)
Quarter: 2011Q1

REPORT INFORMATION
  Report Type: 
  Country: None (occurrence: None)
  Receive Date: 20110318
  Receipt Date: 20110318
  Transmission Date: 20110831
  Serious: Yes (Hospitalization)
  Sender: FDA-Public Use
  Company Number: None

PATIENT
  Sex: Female
  Weight: 64.77 kg

DRUGS (9)
  1. BISACODYL EC [Concomitant]
  2. REGLAN [Concomitant]
  3. CA CARBONATE-MAG HYDROXIDE [Concomitant]
  4. ESOMEPRAZOLE MAGNESIUM [Concomitant]
  5. NORCO [Concomitant]
  6. PAZOPANIB 400MG GLAXOSMITHKLINE PAZOPANIB [Suspect]
     Indication: ADENOCARCINOMA
     Dosage: 400 MG, 20 PILLS ONCE DAILY ORAL 047
     Route: 048
     Dates: start: 20110120, end: 20110201
  7. PAZOPANIB 400MG GLAXOSMITHKLINE PAZOPANIB [Suspect]
     Indication: ADENOCARCINOMA
     Dosage: 400 MG, 20 PILLS ONCE DAILY ORAL 047
     Route: 048
     Dates: start: 20110210, end: 20110316
  8. PAZOPANIB 400MG GLAXOSMITHKLINE PAZOPANIB [Suspect]
     Indication: ADENOCARCINOMA
     Dosage: 400 MG, 20 PILLS ONCE DAILY ORAL 047
     Route: 048
     Dates: start: 20110112, end: 20110119
  9. AMLODIPINE BESYLATE [Concomitant]

REACTIONS (1)
  - PNEUMONIA [None]
